FAERS Safety Report 5601329-1 (Version None)
Quarter: 2008Q1

REPORT INFORMATION
  Report Type: 
  Country: None (occurrence: None)
  Receive Date: 20080118
  Receipt Date: 20080108
  Transmission Date: 20080703
  Serious: Yes (Other)
  Sender: FDA-Public Use
  Company Number: 100#08#2008-00131

PATIENT
  Age: 27 Year
  Sex: Male

DRUGS (3)
  1. CICLOSPORIN A (CICLOSPORIN A) [Suspect]
     Indication: HAEMORRHAGIC DIATHESIS
     Dosage: 200 MG THREE TIMES DAILY, DECREASED DOSAGE
     Dates: start: 19940101, end: 19970401
  2. CICLOSPORIN A (CICLOSPORIN A) [Suspect]
     Indication: HAEMORRHAGIC DIATHESIS
     Dosage: 200 MG THREE TIMES DAILY, DECREASED DOSAGE
     Dates: start: 19990901
  3. FIX (FACTOR IX) [Concomitant]

REACTIONS (2)
  - NEPHROPATHY TOXIC [None]
  - NEPHROTIC SYNDROME [None]
